FAERS Safety Report 19890782 (Version 8)
Quarter: 2022Q1

REPORT INFORMATION
  Report Type: Report from Study
  Country: US (occurrence: US)
  Receive Date: 20210928
  Receipt Date: 20220322
  Transmission Date: 20220423
  Serious: Yes (Other)
  Sender: FDA-Public Use
  Company Number: US-GLAXOSMITHKLINE-US2021191730

PATIENT
  Age: 70 Year
  Sex: Female

DRUGS (20)
  1. NIRAPARIB [Suspect]
     Active Substance: NIRAPARIB
     Indication: Ovarian cancer
     Dosage: 200 MG, QD (Q AM W/BREAKFAST)
     Route: 048
     Dates: start: 20210831
  2. NIRAPARIB [Suspect]
     Active Substance: NIRAPARIB
     Dosage: 200 MG, QD
  3. NIRAPARIB [Suspect]
     Active Substance: NIRAPARIB
     Dosage: 200 MG, QD
  4. NIRAPARIB [Suspect]
     Active Substance: NIRAPARIB
     Dosage: 200 MG, QD
     Route: 048
  5. NIRAPARIB [Suspect]
     Active Substance: NIRAPARIB
     Dosage: 200 MG, QD
     Route: 048
  6. NIRAPARIB [Suspect]
     Active Substance: NIRAPARIB
     Dosage: 200 MG, QD
     Route: 048
  7. LYNPARZA [Suspect]
     Active Substance: OLAPARIB
     Indication: Product used for unknown indication
     Dosage: UNK
  8. AMLODIPINE BESYLATE [Suspect]
     Active Substance: AMLODIPINE BESYLATE
     Indication: Product used for unknown indication
     Dosage: UNK
  9. AVASTIN [Concomitant]
     Active Substance: BEVACIZUMAB
     Indication: Product used for unknown indication
     Dosage: UNK (EVERY 3 WEEKS)
     Route: 042
  10. AMITRIPTYLINE [Concomitant]
     Active Substance: AMITRIPTYLINE
     Indication: Product used for unknown indication
     Dosage: 50 MG, QD (EVERY HS)
  11. LIOTHYRONINE [Concomitant]
     Active Substance: LIOTHYRONINE
     Indication: Product used for unknown indication
     Dosage: 25 UG, QD
  12. LISINOPRIL [Concomitant]
     Active Substance: LISINOPRIL
     Indication: Product used for unknown indication
     Dosage: 20 MG, QD
  13. NATURE-THROID [Concomitant]
     Active Substance: THYROID, PORCINE
     Indication: Product used for unknown indication
     Dosage: 60 MG, QD
  14. ONDANSETRON [Concomitant]
     Active Substance: ONDANSETRON
     Indication: Product used for unknown indication
     Dosage: 8 MG (PRN)
  15. PROCHLORPERAZINE [Concomitant]
     Active Substance: PROCHLORPERAZINE
     Indication: Product used for unknown indication
     Dosage: 10 MG, BID
  16. PROCHLORPERAZINE [Concomitant]
     Active Substance: PROCHLORPERAZINE
     Dosage: 10 MG, PRN
  17. VITAMIN B12 [Concomitant]
     Active Substance: CYANOCOBALAMIN
     Indication: Product used for unknown indication
     Dosage: 500 UG, QD
  18. PROPRANOLOL [Concomitant]
     Active Substance: PROPRANOLOL HYDROCHLORIDE
     Indication: Product used for unknown indication
     Dosage: 40 MG, BID
  19. BIOTIN [Concomitant]
     Active Substance: BIOTIN
     Indication: Product used for unknown indication
     Dosage: UNK
  20. BIOTIN [Concomitant]
     Active Substance: BIOTIN
     Dosage: 16 MG, QD

REACTIONS (18)
  - Intracranial aneurysm [Not Recovered/Not Resolved]
  - Nausea [Recovered/Resolved]
  - Madarosis [Recovering/Resolving]
  - Alopecia [Recovering/Resolving]
  - Fatigue [Not Recovered/Not Resolved]
  - Headache [Recovering/Resolving]
  - Blood sodium decreased [Not Recovered/Not Resolved]
  - Sinus disorder [Unknown]
  - Dry mouth [Not Recovered/Not Resolved]
  - Thyroid function test abnormal [Unknown]
  - Diarrhoea [Recovered/Resolved]
  - Hypersensitivity [Unknown]
  - Onychoclasis [Not Recovered/Not Resolved]
  - Vomiting projectile [Recovered/Resolved]
  - Blood urea increased [Unknown]
  - Blood urea nitrogen/creatinine ratio increased [Unknown]
  - Mean cell volume increased [Unknown]
  - Protein urine present [Unknown]

NARRATIVE: CASE EVENT DATE: 20220216
